FAERS Safety Report 12196873 (Version 2)
Quarter: 2016Q1

REPORT INFORMATION
  Report Type: Spontaneous
  Country: NL (occurrence: NL)
  Receive Date: 20160321
  Receipt Date: 20160330
  Transmission Date: 20160526
  Serious: Yes (Hospitalization, Other)
  Sender: FDA-Public Use
  Company Number: NL-B.I. PHARMACEUTICALS,INC./RIDGEFIELD-2016-BI-17425YA

PATIENT
  Age: 72 Year
  Sex: Male

DRUGS (1)
  1. OMNI OCAS [Suspect]
     Active Substance: TAMSULOSIN HYDROCHLORIDE
     Indication: URINARY TRACT DISORDER
     Dosage: 0.4 MG
     Route: 048
     Dates: end: 201412

REACTIONS (2)
  - Myocardial infarction [Recovered/Resolved]
  - Pneumonia [Unknown]

NARRATIVE: CASE EVENT DATE: 20141224
